FAERS Safety Report 13414305 (Version 3)
Quarter: 2020Q4

REPORT INFORMATION
  Report Type: Spontaneous
  Country: GB (occurrence: GB)
  Receive Date: 20170407
  Receipt Date: 20201015
  Transmission Date: 20210113
  Serious: Yes (Life-Threatening, Hospitalization, Other)
  Sender: FDA-Public Use
  Company Number: GB-BAUSCH-BL-2017-008225

PATIENT
  Age: 23 Year
  Sex: Male

DRUGS (6)
  1. LEVOTHYROXINE. [Suspect]
     Active Substance: LEVOTHYROXINE
     Route: 065
  2. AMLODIPINE [Concomitant]
     Active Substance: AMLODIPINE BESYLATE
     Indication: PRODUCT USED FOR UNKNOWN INDICATION
  3. METFORMIN [Suspect]
     Active Substance: METFORMIN HYDROCHLORIDE
     Indication: PRODUCT USED FOR UNKNOWN INDICATION
     Dosage: 50-60 G (1 TOTAL)
     Route: 048
  4. HYDROCHLOROTHIAZIDE;TELMISARTAN [Suspect]
     Active Substance: HYDROCHLOROTHIAZIDE\TELMISARTAN
     Indication: PRODUCT USED FOR UNKNOWN INDICATION
     Dosage: HYDROCHLOROTHIAZIDE: 6.25 MG, TELMISARTAN: 20 MG
     Route: 065
  5. METFORMIN [Suspect]
     Active Substance: METFORMIN HYDROCHLORIDE
     Route: 048
  6. LEVOTHYROXINE. [Suspect]
     Active Substance: LEVOTHYROXINE
     Indication: PRODUCT USED FOR UNKNOWN INDICATION
     Dosage: UNCLEAR AMOUNT
     Route: 065

REACTIONS (9)
  - Electrocardiogram QT prolonged [Recovered/Resolved]
  - Condition aggravated [Recovered/Resolved]
  - Hepatic function abnormal [Recovered/Resolved]
  - Intentional overdose [Recovered/Resolved]
  - Haemodynamic instability [Recovered/Resolved]
  - Acute kidney injury [Recovered/Resolved]
  - Multiple organ dysfunction syndrome [Recovered/Resolved]
  - Coagulopathy [Recovered/Resolved]
  - Lactic acidosis [Recovered/Resolved]
